FAERS Safety Report 17730704 (Version 1)
Quarter: 2020Q2

REPORT INFORMATION
  Report Type: Report from Study
  Country: DE (occurrence: DE)
  Receive Date: 20200430
  Receipt Date: 20200430
  Transmission Date: 20200714
  Serious: Yes (Other)
  Sender: FDA-Public Use
  Company Number: DE-PFIZER INC-2020171761

PATIENT
  Age: 14 Year
  Sex: Male
  Weight: 37 kg

DRUGS (2)
  1. SOMATROPIN. [Suspect]
     Active Substance: SOMATROPIN
     Indication: SMALL FOR DATES BABY
  2. SOMATROPIN. [Suspect]
     Active Substance: SOMATROPIN
     Indication: SILVER-RUSSELL SYNDROME
     Dosage: 1.2 MG, 1X/DAY
     Route: 058
     Dates: start: 20100913, end: 20180705

REACTIONS (6)
  - Hyperinsulinism [Unknown]
  - Weight increased [Unknown]
  - Glucose tolerance impaired [Unknown]
  - Hyperglycaemia [Unknown]
  - Disease progression [Unknown]
  - Metabolic disorder [Unknown]

NARRATIVE: CASE EVENT DATE: 20180702
